FAERS Safety Report 4507081-5 (Version None)
Quarter: 2004Q4

REPORT INFORMATION
  Report Type: 
  Country: None (occurrence: None)
  Receive Date: 20041122
  Receipt Date: 20041007
  Transmission Date: 20050328
  Serious: Yes (Life-Threatening, Hospitalization, Disabling)
  Sender: FDA-Public Use
  Company Number: DE-MERCK-0410DEU00235

PATIENT
  Age: 64 Year
  Sex: Male
  Weight: 87 kg

DRUGS (9)
  1. VIOXX [Suspect]
     Indication: RHEUMATOID ARTHRITIS
     Route: 048
     Dates: start: 20010813, end: 20041005
  2. ADALIMUMAB [Concomitant]
     Route: 065
     Dates: start: 20030301
  3. METHOTREXATE [Concomitant]
     Route: 065
     Dates: start: 20010801
  4. METHYLPREDNISOLONE [Concomitant]
     Route: 065
     Dates: start: 20001001
  5. CLOPIDOGREL BISULFATE [Concomitant]
     Route: 065
     Dates: start: 20001101
  6. VASOTEC [Concomitant]
     Indication: HYPERTENSION
     Route: 065
     Dates: start: 19940101
  7. METOPROLOL SUCCINATE [Concomitant]
     Route: 065
     Dates: start: 19940101, end: 20040929
  8. ALLOPURINOL [Concomitant]
     Indication: HYPERURICAEMIA
     Route: 065
     Dates: start: 19970401, end: 20040929
  9. FLUVASTATIN SODIUM [Concomitant]
     Indication: HYPERLIPIDAEMIA
     Route: 065
     Dates: start: 19940101, end: 20040929

REACTIONS (3)
  - ANGINA UNSTABLE [None]
  - CORONARY ARTERY DISEASE [None]
  - CORONARY ARTERY STENOSIS [None]
